FAERS Safety Report 20109966 (Version 12)
Quarter: 2025Q3

REPORT INFORMATION
  Report Type: Report from Study
  Country: US (occurrence: US)
  Receive Date: 20211124
  Receipt Date: 20250930
  Transmission Date: 20251021
  Serious: Yes (Hospitalization, Other)
  Sender: TAKEDA
  Company Number: US-TAKEDA-2021TUS071793

PATIENT
  Sex: Male
  Weight: 73 kg

DRUGS (69)
  1. .ALPHA.1-PROTEINASE INHIBITOR HUMAN [Suspect]
     Active Substance: .ALPHA.1-PROTEINASE INHIBITOR HUMAN
     Indication: Alpha-1 antitrypsin deficiency
     Dosage: 125 MG/KG, 1/WEEK
     Dates: start: 20211005
  2. .ALPHA.1-PROTEINASE INHIBITOR HUMAN [Suspect]
     Active Substance: .ALPHA.1-PROTEINASE INHIBITOR HUMAN
     Indication: Immunodeficiency common variable
     Dosage: 125 MG/KG, 1/WEEK
  3. OZEMPIC [Suspect]
     Active Substance: SEMAGLUTIDE
     Indication: Product used for unknown indication
  4. DIPHENHYDRAMINE [Concomitant]
     Active Substance: DIPHENHYDRAMINE
  5. SODIUM CHLORIDE [Concomitant]
     Active Substance: SODIUM CHLORIDE
  6. EPINEPHRINE [Concomitant]
     Active Substance: EPINEPHRINE
  7. Lmx [Concomitant]
  8. JANUVIA [Concomitant]
     Active Substance: SITAGLIPTIN PHOSPHATE
  9. LEVALBUTEROL [Concomitant]
     Active Substance: LEVALBUTEROL
  10. ZYRTEC [Concomitant]
     Active Substance: CETIRIZINE HYDROCHLORIDE
  11. ALBUTEROL\IPRATROPIUM [Concomitant]
     Active Substance: ALBUTEROL\IPRATROPIUM
  12. ATROVENT [Concomitant]
     Active Substance: IPRATROPIUM BROMIDE
  13. BROVANA [Concomitant]
     Active Substance: ARFORMOTEROL TARTRATE
  14. BUDESONIDE [Concomitant]
     Active Substance: BUDESONIDE
  15. LYRICA [Concomitant]
     Active Substance: PREGABALIN
  16. DYMISTA [Concomitant]
     Active Substance: AZELASTINE HYDROCHLORIDE\FLUTICASONE PROPIONATE
  17. SEREVENT DISKUS [Concomitant]
     Active Substance: SALMETEROL XINAFOATE
  18. FLOVENT [Concomitant]
     Active Substance: FLUTICASONE PROPIONATE
  19. LINZESS [Concomitant]
     Active Substance: LINACLOTIDE
  20. PREDNISONE [Concomitant]
     Active Substance: PREDNISONE
  21. CIALIS [Concomitant]
     Active Substance: TADALAFIL
  22. CALCIUM [Concomitant]
     Active Substance: CALCIUM
  23. NYSTATIN [Concomitant]
     Active Substance: NYSTATIN
  24. OXYGEN [Concomitant]
     Active Substance: OXYGEN
  25. SINGULAIR [Concomitant]
     Active Substance: MONTELUKAST SODIUM
  26. MUCINEX [Concomitant]
     Active Substance: GUAIFENESIN
  27. PROTONIX [Concomitant]
     Active Substance: PANTOPRAZOLE SODIUM
  28. SUCRALFATE [Concomitant]
     Active Substance: SUCRALFATE
  29. ALPRAZOLAM [Concomitant]
     Active Substance: ALPRAZOLAM
  30. ATROVENT HFA [Concomitant]
     Active Substance: IPRATROPIUM BROMIDE
  31. FLOVENT HFA [Concomitant]
     Active Substance: FLUTICASONE PROPIONATE
  32. LEVALBUTEROL TARTRATE [Concomitant]
     Active Substance: LEVALBUTEROL TARTRATE
  33. CALCIUM\CHOLECALCIFEROL [Concomitant]
     Active Substance: CALCIUM\CHOLECALCIFEROL
  34. ONDANSETRON HYDROCHLORIDE [Concomitant]
     Active Substance: ONDANSETRON HYDROCHLORIDE
  35. TUDORZA PRESSAIR [Concomitant]
     Active Substance: ACLIDINIUM BROMIDE
  36. YUPELRI [Concomitant]
     Active Substance: REVEFENACIN
  37. AZELASTINE HYDROCHLORIDE\FLUTICASONE PROPIONATE [Concomitant]
     Active Substance: AZELASTINE HYDROCHLORIDE\FLUTICASONE PROPIONATE
  38. FLUCONAZOLE [Concomitant]
     Active Substance: FLUCONAZOLE
  39. ACETAMINOPHEN [Concomitant]
     Active Substance: ACETAMINOPHEN
  40. PHENYLEPHRINE HYDROCHLORIDE [Concomitant]
     Active Substance: PHENYLEPHRINE HYDROCHLORIDE
  41. PREGABALIN [Concomitant]
     Active Substance: PREGABALIN
  42. INCRUSE ELLIPTA [Concomitant]
     Active Substance: UMECLIDINIUM BROMIDE
  43. LEVALBUTEROL HYDROCHLORIDE [Concomitant]
     Active Substance: LEVALBUTEROL HYDROCHLORIDE
  44. ALBUTEROL SULFATE [Concomitant]
     Active Substance: ALBUTEROL SULFATE
  45. IPRATROPIUM BROMIDE [Concomitant]
     Active Substance: IPRATROPIUM BROMIDE
  46. ACLIDINIUM BROMIDE [Concomitant]
     Active Substance: ACLIDINIUM BROMIDE
  47. TRIAMCINOLONE ACETONIDE [Concomitant]
     Active Substance: TRIAMCINOLONE ACETONIDE
  48. KETOCONAZOLE [Concomitant]
     Active Substance: KETOCONAZOLE
  49. CARAFATE [Concomitant]
     Active Substance: SUCRALFATE
  50. LEVEMIR [Concomitant]
     Active Substance: INSULIN DETEMIR
  51. POTASSIUM CHLORIDE [Concomitant]
     Active Substance: POTASSIUM CHLORIDE
  52. SULFAMETHOXAZOLE AND TRIMETHOPRIM [Concomitant]
     Active Substance: SULFAMETHOXAZOLE\TRIMETHOPRIM
  53. TRESIBA [Concomitant]
     Active Substance: INSULIN DEGLUDEC
  54. LASIX [Concomitant]
     Active Substance: FUROSEMIDE
  55. TADALAFIL [Concomitant]
     Active Substance: TADALAFIL
  56. PANTOPRAZOLE SODIUM [Concomitant]
     Active Substance: PANTOPRAZOLE SODIUM
  57. PRIVIGEN [Concomitant]
     Active Substance: HUMAN IMMUNOGLOBULIN G
  58. HEPARIN [Concomitant]
     Active Substance: HEPARIN SODIUM
  59. LIDOCAINE [Concomitant]
     Active Substance: LIDOCAINE
  60. HUMALOG [Concomitant]
     Active Substance: INSULIN LISPRO
  61. DIPHENHYDRAMINE HYDROCHLORIDE [Concomitant]
     Active Substance: DIPHENHYDRAMINE HYDROCHLORIDE
  62. TADALAFIL [Concomitant]
     Active Substance: TADALAFIL
  63. KETOCONAZOLE [Concomitant]
     Active Substance: KETOCONAZOLE
  64. LIDOCAINE [Concomitant]
     Active Substance: LIDOCAINE
  65. DOXYCYCLINE HYCLATE [Concomitant]
     Active Substance: DOXYCYCLINE HYCLATE
  66. LEVOFLOXACIN [Concomitant]
     Active Substance: LEVOFLOXACIN
  67. RESTASIS [Concomitant]
     Active Substance: CYCLOSPORINE
  68. PREDNISOLONE [Concomitant]
     Active Substance: PREDNISOLONE
  69. ARNUITY ELLIPTA [Concomitant]
     Active Substance: FLUTICASONE FUROATE

REACTIONS (25)
  - Dehydration [Recovering/Resolving]
  - Skin cancer [Unknown]
  - Pneumonia aspiration [Recovering/Resolving]
  - Nephrolithiasis [Unknown]
  - Pneumonia [Unknown]
  - Aspiration [Unknown]
  - Squamous cell carcinoma [Unknown]
  - Tenderness [Unknown]
  - Herpes zoster [Unknown]
  - Pain [Unknown]
  - Blood glucose decreased [Unknown]
  - Illness [Recovering/Resolving]
  - Pyrexia [Unknown]
  - Weight decreased [Recovering/Resolving]
  - Low lung compliance [Unknown]
  - Sinusitis [Unknown]
  - Vomiting [Recovering/Resolving]
  - Chest discomfort [Unknown]
  - Chest pain [Unknown]
  - Lung disorder [Unknown]
  - Cough [Unknown]
  - Dyspnoea [Unknown]
  - Nausea [Recovering/Resolving]
  - Malaise [Unknown]
  - Fatigue [Unknown]
